FAERS Safety Report 19079117 (Version 1)
Quarter: 2021Q1

REPORT INFORMATION
  Report Type: Spontaneous
  Country: NL (occurrence: NL)
  Receive Date: 20210331
  Receipt Date: 20210331
  Transmission Date: 20210420
  Serious: Yes (Other)
  Sender: FDA-Public Use
  Company Number: NL-TEVA-2021-NL-1895171

PATIENT
  Sex: Male
  Weight: 80 kg

DRUGS (7)
  1. METOPROLOL TABLET MGA  50MG (SUCCINAAT) / BRAND NAME NOT SPECIFIED [Concomitant]
     Active Substance: METOPROLOL SUCCINATE
     Dosage: THERAPY START DATE ASKU, THERAPY END DATE ASKU, 50 MG (MILLIGRAM)
  2. OMEPRAZOL / BRAND NAME NOT SPECIFIED [Suspect]
     Active Substance: OMEPRAZOLE
     Indication: DUODENAL ULCER
     Dosage: ONE?OFF 1 PIECE, 1DF
     Dates: start: 202102, end: 20210208
  3. AMOXICIL/CLARITRO/PANTOPRA (PANCLAMOX) / PANCLAMOX COMBINATIEVERPAKKIN [Suspect]
     Active Substance: AMOXICILLIN\CLARITHROMYCIN\PANTOPRAZOLE
     Indication: DUODENAL ULCER
     Dosage: 2X DAILY 3 TABLETS
     Dates: start: 20210209, end: 2021
  4. FERROFUMARAAT TABLET 200MG / BRAND NAME NOT SPECIFIED [Concomitant]
     Active Substance: FERROUS FUMARATE
     Dosage: THERAPY START DATE ASKU, THERAPY END DATE ASKU, 200 MG (MILLIGRAM)
  5. RABEPRAZOL [RABEPRAZOLE] [Suspect]
     Active Substance: RABEPRAZOLE
     Indication: DUODENAL ULCER
     Dosage: 2 DOSAGE FORMS DAILY; THERAPY START DATE NASK
     Dates: end: 20210303
  6. RABEPRAZOL [RABEPRAZOLE] [Suspect]
     Active Substance: RABEPRAZOLE
     Dosage: 1 DOSAGE FORMS DAILY; THERAPY START DATE NASK
     Dates: start: 20210209
  7. PANTOPRAZOL TABLET MSR 40MG / BRAND NAME NOT SPECIFIED [Suspect]
     Active Substance: PANTOPRAZOLE
     Indication: DUODENAL ULCER
     Dosage: 1 DOSAGE FORMS DAILY; (AFTER STOP PANCLAMOX)
     Dates: start: 20210209, end: 2021

REACTIONS (3)
  - Cerebral disorder [Recovered/Resolved]
  - Depressed mood [Recovering/Resolving]
  - Hallucination [Recovered/Resolved]
